FAERS Safety Report 9482192 (Version 2)
Quarter: 2013Q3

REPORT INFORMATION
  Report Type: Spontaneous
  Country: DE (occurrence: FR)
  Receive Date: 20130828
  Receipt Date: 20130828
  Transmission Date: 20140515
  Serious: Yes (Death, Hospitalization)
  Sender: FDA-Public Use
  Company Number: FR-FRI-1000021701

PATIENT
  Age: 72 Year
  Sex: Male

DRUGS (6)
  1. MEMANTINE [Suspect]
     Indication: DEMENTIA ALZHEIMER^S TYPE
     Dosage: 20 MG
     Route: 048
     Dates: start: 20110427, end: 20110505
  2. HALDOL [Suspect]
     Dosage: 0.05 DOSAGE FORMS
     Route: 048
     Dates: start: 20110427, end: 20110505
  3. NOCTAMIDE [Suspect]
     Dosage: 2 MG
     Route: 048
     Dates: start: 20110427, end: 20110509
  4. PERMIXON [Suspect]
     Dosage: 1 DOSAGE FORM
     Route: 048
     Dates: start: 20110427, end: 20110507
  5. XYZAL [Suspect]
     Dosage: 3 DOSAGE FORM
     Route: 048
     Dates: start: 20110501, end: 20110505
  6. AUGMENTIN [Suspect]
     Dosage: 1 DOSAGE FORM
     Route: 042
     Dates: start: 20110427, end: 20110505

REACTIONS (1)
  - Pancytopenia [Fatal]
